FAERS Safety Report 21310881 (Version 2)
Quarter: 2022Q3

REPORT INFORMATION
  Report Type: Report from Study
  Country: CA (occurrence: CA)
  Receive Date: 20220909
  Receipt Date: 20220921
  Transmission Date: 20221026
  Serious: Yes (Hospitalization, Other)
  Sender: FDA-Public Use
  Company Number: CA-JNJFOC-20220909715

PATIENT
  Age: 74 Year
  Sex: Male

DRUGS (1)
  1. SIMPONI [Suspect]
     Active Substance: GOLIMUMAB
     Indication: Ankylosing spondylitis
     Route: 058
     Dates: start: 20210518

REACTIONS (3)
  - Post procedural sepsis [Recovering/Resolving]
  - Neoplasm malignant [Unknown]
  - Biopsy prostate [Recovering/Resolving]

NARRATIVE: CASE EVENT DATE: 20220801
